FAERS Safety Report 25567462 (Version 1)
Quarter: 2025Q3

REPORT INFORMATION
  Report Type: Spontaneous
  Country: CN (occurrence: CN)
  Receive Date: 20250716
  Receipt Date: 20250716
  Transmission Date: 20251021
  Serious: Yes (Hospitalization, Disabling, Other)
  Sender: PFIZER
  Company Number: CN-MLMSERVICE-20250707-PI562250-00306-2

PATIENT
  Age: 47 Year
  Sex: Male
  Weight: 59 kg

DRUGS (7)
  1. METHYLPREDNISOLONE [Suspect]
     Active Substance: METHYLPREDNISOLONE
     Indication: Glomerulonephritis membranous
     Dosage: GRADUAL REDUCTION AS PER MEDICAL ADVICE
     Route: 048
     Dates: start: 2022, end: 202207
  2. METHYLPREDNISOLONE [Suspect]
     Active Substance: METHYLPREDNISOLONE
     Dosage: POST OPERATIVELY
     Route: 048
     Dates: start: 202207, end: 20220804
  3. METHYLPREDNISOLONE [Suspect]
     Active Substance: METHYLPREDNISOLONE
     Dosage: 24 MG, 1X/DAY
     Route: 048
     Dates: start: 20220804
  4. TACROLIMUS [Suspect]
     Active Substance: TACROLIMUS
     Indication: Glomerulonephritis membranous
     Dosage: 3?MG IN THE MORNING AND 2?MG IN THE EVENING
     Route: 048
     Dates: start: 20220729, end: 20220802
  5. TACROLIMUS [Suspect]
     Active Substance: TACROLIMUS
     Dosage: 2?MG IN THE MORNING AND 1?MG IN THE EVENING
     Route: 048
     Dates: start: 20220802
  6. CALCIUM [Concomitant]
     Active Substance: CALCIUM
     Indication: Mineral supplementation
     Dates: start: 20220729
  7. LOSARTAN POTASSIUM [Concomitant]
     Active Substance: LOSARTAN POTASSIUM
     Indication: Hypertension
     Dosage: 100 MG, 1X/DAY

REACTIONS (7)
  - Herpes zoster [Unknown]
  - Pulmonary nocardiosis [Recovered/Resolved]
  - Peripheral nerve injury [Recovering/Resolving]
  - Diarrhoea [Unknown]
  - Keratitis [Recovered/Resolved]
  - Immunosuppressant drug level increased [Recovered/Resolved]
  - Off label use [Unknown]

NARRATIVE: CASE EVENT DATE: 20220101
